FAERS Safety Report 9311204 (Version 1)
Quarter: 2013Q2

REPORT INFORMATION
  Report Type: Spontaneous
  Country: US (occurrence: US)
  Receive Date: 20130528
  Receipt Date: 20130528
  Transmission Date: 20140414
  Serious: No
  Sender: FDA-Public Use
  Company Number: US-BAYER-2013-065112

PATIENT
  Age: 41 Year
  Sex: Female

DRUGS (4)
  1. YAZ [Suspect]
     Indication: MENSTRUATION IRREGULAR
  2. CIPRO [Concomitant]
  3. MOTRIN [Concomitant]
  4. KEFLEX [Concomitant]

REACTIONS (1)
  - Thrombophlebitis superficial [Recovering/Resolving]
